FAERS Safety Report 8798881 (Version 1)
Quarter: 2012Q4

REPORT INFORMATION
  Report Type: 
  Country: MX (occurrence: MX)
  Receive Date: 20120920
  Receipt Date: 20120920
  Transmission Date: 20130627
  Serious: Yes (Death)
  Sender: FDA-Public Use
  Company Number: PHHY2012MX081602

PATIENT
  Age: 61 Year
  Sex: Female

DRUGS (4)
  1. EXFORGE [Suspect]
     Indication: HYPERTENSION
     Dosage: 1 DF (160/10 mg), daily
     Dates: start: 201109
  2. EXFORGE [Suspect]
     Dosage: 1.5 DF (160/10 mg), daily
  3. FOLIC ACID [Concomitant]
     Indication: ANAEMIA
     Dosage: 1 DF, daily
     Dates: start: 201104
  4. RIVOTRIL [Concomitant]
     Indication: DEPRESSION
     Dosage: 5 U, UNK
     Dates: start: 201009

REACTIONS (3)
  - Myocardial infarction [Fatal]
  - Urine abnormality [Unknown]
  - Wrong technique in drug usage process [Unknown]
